FAERS Safety Report 15551674 (Version 2)
Quarter: 2020Q3

REPORT INFORMATION
  Report Type: Report from Study
  Country: DE (occurrence: DE)
  Receive Date: 20181025
  Receipt Date: 20181031
  Transmission Date: 20201104
  Serious: Yes (Life-Threatening, Hospitalization)
  Sender: FDA-Public Use
  Company Number: PHHO2018DE010952

PATIENT
  Age: 84 Year
  Sex: Male
  Weight: 67 kg

DRUGS (3)
  1. DABRAFENIB [Suspect]
     Active Substance: DABRAFENIB
     Indication: METASTATIC MALIGNANT MELANOMA
     Dosage: 75 MG, BID
     Route: 048
     Dates: start: 20180612, end: 20181024
  2. PDR001 [Suspect]
     Active Substance: SPARTALIZUMAB
     Indication: BRAF V600E MUTATION POSITIVE
     Dosage: 400 MG, Q4W
     Route: 017
     Dates: start: 20180612, end: 20181002
  3. TRAMETINIB [Suspect]
     Active Substance: TRAMETINIB
     Indication: METASTATIC MALIGNANT MELANOMA
     Dosage: 2 MG, QD
     Route: 048
     Dates: start: 20180612, end: 20181024

REACTIONS (2)
  - Coronary artery disease [Recovering/Resolving]
  - Cerebral haemorrhage [Not Recovered/Not Resolved]

NARRATIVE: CASE EVENT DATE: 20180704
